FAERS Safety Report 6327392-0 (Version None)
Quarter: 2009Q3

REPORT INFORMATION
  Report Type: 
  Country: None (occurrence: None)
  Receive Date: 20090825
  Receipt Date: 20090817
  Transmission Date: 20100115
  Serious: Yes (Other)
  Sender: FDA-Public Use
  Company Number: US-PFIZER INC-2005102229

PATIENT
  Sex: Female
  Weight: 48 kg

DRUGS (6)
  1. PROVERA [Suspect]
     Indication: HORMONE REPLACEMENT THERAPY
     Dosage: 5 MG, UNK
     Route: 048
     Dates: start: 19980501, end: 19990301
  2. OGEN [Suspect]
     Indication: HORMONE REPLACEMENT THERAPY
     Dosage: 1.25 MG, UNK
     Route: 048
     Dates: start: 19970601, end: 19980901
  3. MEDROXYPROGESTERONE AND MEDROXYPROGESTERONE ACETATE [Suspect]
     Indication: HORMONE REPLACEMENT THERAPY
     Dosage: 5 MG, UNK
     Route: 048
     Dates: start: 19980501, end: 19990301
  4. PREMPRO [Suspect]
     Indication: HORMONE REPLACEMENT THERAPY
     Dosage: 0.625 MG, 5 MG
     Dates: start: 19980901, end: 19990301
  5. MEDROXYPROGESTERONE ACETATE [Suspect]
     Indication: HORMONE REPLACEMENT THERAPY
     Dosage: 5 MG, UNK
     Dates: start: 19980501, end: 19990301
  6. LOMOTIL [Concomitant]
     Indication: DIARRHOEA
     Dosage: UNK

REACTIONS (1)
  - BREAST CANCER FEMALE [None]
